FAERS Safety Report 5099451-4 (Version None)
Quarter: 2006Q3

REPORT INFORMATION
  Report Type: 
  Country: None (occurrence: None)
  Receive Date: 20060908
  Receipt Date: 20060830
  Transmission Date: 20061208
  Serious: Yes (Hospitalization, Other)
  Sender: FDA-Public Use
  Company Number: US-BRISTOL-MYERS SQUIBB COMPANY-13493689

PATIENT
  Age: 31 Year
  Sex: Female

DRUGS (7)
  1. COUMADIN [Suspect]
     Indication: DEEP VEIN THROMBOSIS
     Dates: start: 20060701
  2. COUMADIN [Suspect]
     Indication: PULMONARY EMBOLISM
     Dates: start: 20060701
  3. CLONIDINE [Concomitant]
  4. PHENYTOIN [Concomitant]
  5. FUROSEMIDE [Concomitant]
  6. METOPROLOL TARTRATE [Concomitant]
  7. PHOSLO [Concomitant]

REACTIONS (3)
  - ACTIVATED PARTIAL THROMBOPLASTIN TIME PROLONGED [None]
  - INTERNATIONAL NORMALISED RATIO INCREASED [None]
  - REPRODUCTIVE TRACT DISORDER [None]
